FAERS Safety Report 5692919-9 (Version None)
Quarter: 2008Q2

REPORT INFORMATION
  Report Type: 
  Country: None (occurrence: None)
  Receive Date: 20080326
  Receipt Date: 20070914
  Transmission Date: 20081010
  Serious: Yes (Hospitalization)
  Sender: FDA-Public Use
  Company Number: 20070231

PATIENT
  Age: 62 Year
  Sex: Female
  Weight: 63.5036 kg

DRUGS (1)
  1. DEXFERRUM [Suspect]
     Indication: ANAEMIA
     Dosage: TEST DOSE INTRAVENOUS
     Route: 042
     Dates: start: 20070914, end: 20070914

REACTIONS (4)
  - BACK PAIN [None]
  - BLOOD PRESSURE DECREASED [None]
  - DYSPNOEA [None]
  - HEART RATE INCREASED [None]
